FAERS Safety Report 5168540-8 (Version None)
Quarter: 2006Q4

REPORT INFORMATION
  Report Type: 
  Country: None (occurrence: None)
  Receive Date: 20061201
  Receipt Date: 20060727
  Transmission Date: 20070319
  Serious: Yes (Hospitalization)
  Sender: FDA-Public Use
  Company Number: 2006063889

PATIENT
  Age: 53 Year
  Sex: Female
  Weight: 38.1 kg

DRUGS (8)
  1. SILDENAFIL CITRATE [Suspect]
     Indication: PULMONARY HYPERTENSION
     Dosage: 50 MG (25 MG, 2 IN 1 D), ORAL
     Route: 048
     Dates: start: 20050302
  2. WARFARIN SODIUM [Concomitant]
  3. BERAPROST SODIUM (BERAPROST SODIUM) [Concomitant]
  4. AMLODIPINE [Concomitant]
  5. ENALAPRIL MALEATE [Concomitant]
  6. DIGOXIN [Concomitant]
  7. LASIX [Concomitant]
  8. ALDACTONE [Concomitant]

REACTIONS (3)
  - BACTERIAL INFECTION [None]
  - BRONCHITIS ACUTE [None]
  - OFF LABEL USE [None]
